FAERS Safety Report 5333304-9 (Version None)
Quarter: 2007Q2

REPORT INFORMATION
  Report Type: 
  Country: None (occurrence: None)
  Receive Date: 20070521
  Receipt Date: 20070504
  Transmission Date: 20071010
  Serious: Yes (Death)
  Sender: FDA-Public Use
  Company Number: DSA_25093_2004

PATIENT
  Age: 22 Year
  Sex: Male

DRUGS (7)
  1. DILTIAZEM HYDROCHLORIDE [Suspect]
     Dosage: ORAL
     Route: 048
  2. LEXAPRO [Suspect]
     Dosage: ORAL
     Route: 048
  3. BENZODIAZEPINE DERIVATIVES [Suspect]
     Dosage: ORAL
     Route: 048
  4. CALCIUM CHLORIDE [Suspect]
  5. IRON W/VITAMINS NOS [Suspect]
  6. VITAMIN C /00008001/ [Suspect]
  7. IBUPROFEN AND PSEUDOEPHEDRINE HCL [Suspect]

REACTIONS (9)
  - ATRIOVENTRICULAR BLOCK SECOND DEGREE [None]
  - BLOOD PRESSURE DECREASED [None]
  - CARDIO-RESPIRATORY ARREST [None]
  - COMPLETED SUICIDE [None]
  - HEART RATE INCREASED [None]
  - LETHARGY [None]
  - MULTIPLE DRUG OVERDOSE [None]
  - NO THERAPEUTIC RESPONSE [None]
  - SOMNOLENCE [None]
